FAERS Safety Report 4749636-9 (Version None)
Quarter: 2005Q3

REPORT INFORMATION
  Report Type: 
  Country: None (occurrence: None)
  Receive Date: 20050819
  Receipt Date: 20050819
  Transmission Date: 20060218
  Serious: Yes (Life-Threatening)
  Sender: FDA-Public Use
  Company Number: None

PATIENT
  Age: 46 Year
  Sex: Female

DRUGS (1)
  1. ISOVUE-300 [Suspect]
     Indication: HAEMATURIA
     Dosage: 100ML   ONE TIME   IV
     Route: 042
     Dates: start: 20050430, end: 20050430

REACTIONS (4)
  - DYSPHAGIA [None]
  - PRURITUS [None]
  - THROAT TIGHTNESS [None]
  - URTICARIA [None]
